FAERS Safety Report 4586824-9 (Version None)
Quarter: 2005Q1

REPORT INFORMATION
  Report Type: 
  Country: None (occurrence: None)
  Receive Date: 20050217
  Receipt Date: 20050217
  Transmission Date: 20050727
  Serious: Yes (Other)
  Sender: FDA-Public Use
  Company Number: None

PATIENT
  Age: 62 Year
  Sex: Male
  Weight: 96.1626 kg

DRUGS (7)
  1. ZYBAN [Suspect]
     Indication: SMOKING CESSATION THERAPY
     Dosage: 150 MG   4 DAYS  ORAL;  300 MG  DURATION  ORAL
     Route: 048
     Dates: start: 20040830, end: 20040902
  2. ZYBAN [Suspect]
     Indication: SMOKING CESSATION THERAPY
     Dosage: 150 MG   4 DAYS  ORAL;  300 MG  DURATION  ORAL
     Route: 048
     Dates: start: 20040903, end: 20040924
  3. TRIAMTERENE [Concomitant]
  4. INDEROL [Concomitant]
  5. TARKA T-240 [Concomitant]
  6. VOLMAX [Concomitant]
  7. IBUPROPHOEN [Concomitant]

REACTIONS (2)
  - ASTHENIA [None]
  - DYSKINESIA [None]
